FAERS Safety Report 24733985 (Version 1)
Quarter: 2024Q4

REPORT INFORMATION
  Report Type: Spontaneous
  Country: US (occurrence: US)
  Receive Date: 20241214
  Receipt Date: 20241214
  Transmission Date: 20250115
  Serious: No
  Sender: SANOFI AVENTIS
  Company Number: US-SA-2024SA368798

PATIENT
  Age: 44 Year
  Sex: Female
  Weight: 72.73 kg

DRUGS (6)
  1. DUPIXENT [Suspect]
     Active Substance: DUPILUMAB
     Indication: Dermatitis atopic
     Dosage: 300 MG, QOW
     Route: 058
     Dates: start: 202411
  2. LOTEPREDNOL ETABONATE [Concomitant]
     Active Substance: LOTEPREDNOL ETABONATE
  3. TACROLIMUS [Concomitant]
     Active Substance: TACROLIMUS
  4. CLOBETASOL [Concomitant]
     Active Substance: CLOBETASOL
  5. KETOCONAZOLE [Concomitant]
     Active Substance: KETOCONAZOLE
  6. FLUOCINONIDE [Concomitant]
     Active Substance: FLUOCINONIDE

REACTIONS (4)
  - Injection site pain [Not Recovered/Not Resolved]
  - Injection site erythema [Not Recovered/Not Resolved]
  - Accidental exposure to product [Unknown]
  - Exposure via skin contact [Unknown]
